FAERS Safety Report 7982151-8 (Version None)
Quarter: 2011Q4

REPORT INFORMATION
  Report Type: 
  Country: None (occurrence: None)
  Receive Date: 20111214
  Receipt Date: 20111214
  Transmission Date: 20120403
  Serious: No
  Sender: FDA-Public Use
  Company Number: None

PATIENT
  Sex: Female

DRUGS (1)
  1. COPAXONE [Suspect]
     Indication: MULTIPLE SCLEROSIS
     Dosage: 20MG DAILY SUBQ
     Route: 058
     Dates: start: 20110708, end: 20111111

REACTIONS (2)
  - INJECTION SITE PAIN [None]
  - HYPOAESTHESIA [None]
